FAERS Safety Report 15697348 (Version 4)
Quarter: 2019Q1

REPORT INFORMATION
  Report Type: Report from Study
  Country: US (occurrence: US)
  Receive Date: 20181206
  Receipt Date: 20190208
  Transmission Date: 20190417
  Serious: Yes (Death, Life-Threatening, Hospitalization, Other)
  Sender: FDA-Public Use
  Company Number: US-BRISTOL-MYERS SQUIBB COMPANY-BMS-2018-112325

PATIENT
  Age: 51 Year
  Sex: Male

DRUGS (1)
  1. ABATACEPT [Suspect]
     Active Substance: ABATACEPT
     Indication: GRAFT VERSUS HOST DISEASE
     Dosage: UNK
     Route: 065
     Dates: start: 20181015, end: 20181112

REACTIONS (8)
  - Atrial tachycardia [Unknown]
  - Pupils unequal [Unknown]
  - Hyperkalaemia [Recovering/Resolving]
  - Multiple organ dysfunction syndrome [Fatal]
  - Pneumonia [Unknown]
  - Hypoxia [Unknown]
  - Graft versus host disease in lung [Fatal]
  - Venous occlusion [Unknown]

NARRATIVE: CASE EVENT DATE: 20181126
